FAERS Safety Report 25795762 (Version 1)
Quarter: 2025Q3

REPORT INFORMATION
  Report Type: Spontaneous
  Country: EU (occurrence: EU)
  Receive Date: 20250912
  Receipt Date: 20250912
  Transmission Date: 20251020
  Serious: Yes (Death)
  Sender: MYLAN
  Company Number: EU-MYLANLABS-2025M1077687

PATIENT
  Age: 48 Year
  Sex: Female

DRUGS (32)
  1. OXALIPLATIN [Suspect]
     Active Substance: OXALIPLATIN
     Indication: Gastric cancer
  2. OXALIPLATIN [Suspect]
     Active Substance: OXALIPLATIN
     Route: 065
  3. OXALIPLATIN [Suspect]
     Active Substance: OXALIPLATIN
     Route: 065
  4. OXALIPLATIN [Suspect]
     Active Substance: OXALIPLATIN
  5. FLUOROURACIL [Suspect]
     Active Substance: FLUOROURACIL
     Indication: Gastric cancer
  6. FLUOROURACIL [Suspect]
     Active Substance: FLUOROURACIL
  7. FLUOROURACIL [Suspect]
     Active Substance: FLUOROURACIL
     Route: 065
  8. FLUOROURACIL [Suspect]
     Active Substance: FLUOROURACIL
     Route: 065
  9. FLUOROURACIL [Suspect]
     Active Substance: FLUOROURACIL
  10. FLUOROURACIL [Suspect]
     Active Substance: FLUOROURACIL
  11. FLUOROURACIL [Suspect]
     Active Substance: FLUOROURACIL
     Route: 065
  12. FLUOROURACIL [Suspect]
     Active Substance: FLUOROURACIL
     Route: 065
  13. DOCETAXEL [Suspect]
     Active Substance: DOCETAXEL
     Indication: Gastric cancer
  14. DOCETAXEL [Suspect]
     Active Substance: DOCETAXEL
     Route: 065
  15. DOCETAXEL [Suspect]
     Active Substance: DOCETAXEL
     Route: 065
  16. DOCETAXEL [Suspect]
     Active Substance: DOCETAXEL
  17. IRINOTECAN [Suspect]
     Active Substance: IRINOTECAN
     Indication: Gastric cancer
  18. IRINOTECAN [Suspect]
     Active Substance: IRINOTECAN
     Route: 065
  19. IRINOTECAN [Suspect]
     Active Substance: IRINOTECAN
     Route: 065
  20. IRINOTECAN [Suspect]
     Active Substance: IRINOTECAN
  21. CISPLATIN [Suspect]
     Active Substance: CISPLATIN
     Indication: Gastric cancer
  22. CISPLATIN [Suspect]
     Active Substance: CISPLATIN
     Route: 065
  23. CISPLATIN [Suspect]
     Active Substance: CISPLATIN
     Route: 065
  24. CISPLATIN [Suspect]
     Active Substance: CISPLATIN
  25. LEUCOVORIN [Suspect]
     Active Substance: LEUCOVORIN\LEUCOVORIN CALCIUM
     Indication: Gastric cancer
  26. LEUCOVORIN [Suspect]
     Active Substance: LEUCOVORIN\LEUCOVORIN CALCIUM
  27. LEUCOVORIN [Suspect]
     Active Substance: LEUCOVORIN\LEUCOVORIN CALCIUM
     Route: 065
  28. LEUCOVORIN [Suspect]
     Active Substance: LEUCOVORIN\LEUCOVORIN CALCIUM
     Route: 065
  29. LEUCOVORIN [Suspect]
     Active Substance: LEUCOVORIN\LEUCOVORIN CALCIUM
  30. LEUCOVORIN [Suspect]
     Active Substance: LEUCOVORIN\LEUCOVORIN CALCIUM
  31. LEUCOVORIN [Suspect]
     Active Substance: LEUCOVORIN\LEUCOVORIN CALCIUM
     Route: 065
  32. LEUCOVORIN [Suspect]
     Active Substance: LEUCOVORIN\LEUCOVORIN CALCIUM
     Route: 065

REACTIONS (5)
  - Drug ineffective [Fatal]
  - Disease progression [Fatal]
  - Palmar-plantar erythrodysaesthesia syndrome [Recovering/Resolving]
  - Nail dystrophy [Recovering/Resolving]
  - Onycholysis [Recovering/Resolving]
